FAERS Safety Report 5122844-3 (Version None)
Quarter: 2006Q4

REPORT INFORMATION
  Report Type: 
  Country: None (occurrence: None)
  Receive Date: 20061005
  Receipt Date: 20060915
  Transmission Date: 20070319
  Serious: Yes (Disabling, Other)
  Sender: FDA-Public Use
  Company Number: US200609002960

PATIENT
  Age: 76 Year
  Sex: Female

DRUGS (10)
  1. EVISTA [Suspect]
  2. FORTEO [Suspect]
     Indication: OSTEOPOROSIS
     Dates: start: 20060215
  3. FORTEO PEN (250MCG/ML) [Concomitant]
  4. AGGRENOX [Concomitant]
  5. POTASSIUM [Concomitant]
  6. CALCIUM GLUCONATE [Concomitant]
  7. CAL-MAG [Concomitant]
  8. NORVASC [Concomitant]
  9. FUROSEMIDE [Concomitant]
  10. CENTRUM SILVER [Concomitant]

REACTIONS (6)
  - CEREBROVASCULAR ACCIDENT [None]
  - DRUG INEFFECTIVE [None]
  - FALL [None]
  - HEMIPARESIS [None]
  - HUMERUS FRACTURE [None]
  - PHARMACEUTICAL PRODUCT COMPLAINT [None]
